FAERS Safety Report 8620906-7 (Version None)
Quarter: 2012Q3

REPORT INFORMATION
  Report Type: 
  Country: None (occurrence: None)
  Receive Date: 20120824
  Receipt Date: 20120820
  Transmission Date: 20120928
  Serious: Yes (Hospitalization)
  Sender: FDA-Public Use
  Company Number: PHHO2012US006460

PATIENT
  Sex: Male
  Weight: 82.086 kg

DRUGS (6)
  1. PLACEBO [Suspect]
     Dosage: UNK
     Route: 058
     Dates: start: 20120815
  2. PLAVIX [Suspect]
     Dosage: UNK
     Dates: end: 20120424
  3. PLACEBO [Suspect]
     Indication: CARDIOVASCULAR EVENT PROPHYLAXIS
     Dosage: UNK
     Route: 058
     Dates: start: 20110824, end: 20120207
  4. ACETYLSALICYLIC ACID SRT [Suspect]
     Dosage: 81 MG, QD
  5. ALEVE [Concomitant]
     Dosage: UNK
  6. ACETYLSALICYLIC ACID SRT [Suspect]
     Dosage: UNK

REACTIONS (1)
  - ANAEMIA [None]
